FAERS Safety Report 21472086 (Version 1)
Quarter: 2022Q4

REPORT INFORMATION
  Report Type: Report from Study
  Country: US (occurrence: US)
  Receive Date: 20221018
  Receipt Date: 20221018
  Transmission Date: 20230113
  Serious: Yes (Life-Threatening, Hospitalization)
  Sender: FDA-Public Use
  Company Number: US-SERVIER-S22010599

PATIENT

DRUGS (11)
  1. PEGASPARGASE [Suspect]
     Active Substance: PEGASPARGASE
     Indication: Acute lymphocytic leukaemia
     Dosage: 4100 [IU], ONE DOSE
     Route: 042
     Dates: start: 20220823, end: 20220823
  2. CYCLOPHOSPHAMIDE [Suspect]
     Active Substance: CYCLOPHOSPHAMIDE
     Indication: Acute lymphocytic leukaemia
     Dosage: 1610 MG, ONE DOSE
     Route: 042
     Dates: start: 20220922
  3. CYTARABINE [Suspect]
     Active Substance: CYTARABINE
     Indication: Acute lymphocytic leukaemia
     Dosage: 120.8 MG, DAYS 1 TO 4 AND 8 TO 11
     Route: 042
     Dates: start: 20220816
  4. CYTARABINE [Suspect]
     Active Substance: CYTARABINE
     Dosage: 40 MG, ON DAYS 1 AND 21
     Route: 037
     Dates: start: 20220816
  5. MERCAPTOPURINE [Suspect]
     Active Substance: MERCAPTOPURINE
     Indication: Acute lymphocytic leukaemia
     Dosage: 550 MG, WEEKLY
     Route: 048
     Dates: start: 20220920
  6. DEXAMETHASONE [Suspect]
     Active Substance: DEXAMETHASONE
     Indication: Acute lymphocytic leukaemia
     Dosage: 5 MG, OTHER
     Route: 048
     Dates: start: 20220817
  7. VINCRISTINE SULFATE [Suspect]
     Active Substance: VINCRISTINE SULFATE
     Indication: Acute lymphocytic leukaemia
     Dosage: 2 MG, 1X/WEEK, ON DAYS 4,11,18 AND 25
     Route: 042
     Dates: start: 20220820
  8. DOXORUBICIN HYDROCHLORIDE [Suspect]
     Active Substance: DOXORUBICIN HYDROCHLORIDE
     Indication: Acute lymphocytic leukaemia
     Dosage: 49.2 MG, DAYS 4 AND 5, FOR 8 CYCLES
     Route: 042
     Dates: start: 20220820
  9. DEXRAZOXANE [Suspect]
     Active Substance: DEXRAZOXANE
     Indication: Acute lymphocytic leukaemia
     Dosage: 492 MG, DAYS 4 AND 5
     Route: 042
     Dates: start: 20220820
  10. METHOTREXATE [Suspect]
     Active Substance: METHOTREXATE
     Indication: Acute lymphocytic leukaemia
     Dosage: 12 MG, ON DAYS 21 AND 32
     Route: 037
     Dates: start: 20220902
  11. HYDROCORTISONE [Suspect]
     Active Substance: HYDROCORTISONE
     Indication: Acute lymphocytic leukaemia
     Dosage: 15 MG, ON DAY 21
     Route: 037
     Dates: start: 20220902

REACTIONS (1)
  - Pseudomonal sepsis [Not Recovered/Not Resolved]

NARRATIVE: CASE EVENT DATE: 20221007
